FAERS Safety Report 13703024 (Version 1)
Quarter: 2017Q2

REPORT INFORMATION
  Report Type: Spontaneous
  Country: ZA (occurrence: ZA)
  Receive Date: 20170629
  Receipt Date: 20170629
  Transmission Date: 20170830
  Serious: Yes (Death)
  Sender: FDA-Public Use
  Company Number: ZA-PFIZER INC-2017278139

PATIENT
  Age: 60 Year

DRUGS (1)
  1. VFEND [Suspect]
     Active Substance: VORICONAZOLE
     Dosage: UNK

REACTIONS (1)
  - Death [Fatal]

NARRATIVE: CASE EVENT DATE: 20170622
